FAERS Safety Report 20561503 (Version 1)
Quarter: 2022Q1

REPORT INFORMATION
  Report Type: Spontaneous
  Country: US (occurrence: US)
  Receive Date: 20220307
  Receipt Date: 20220307
  Transmission Date: 20220423
  Serious: No
  Sender: FDA-Public Use
  Company Number: US-INCYTE CORPORATION-2022IN002030

PATIENT

DRUGS (6)
  1. JAKAFI [Suspect]
     Active Substance: RUXOLITINIB
     Indication: Leukaemia
     Dosage: 10 MILLIGRAM, BID
     Route: 048
     Dates: start: 20220216
  2. PREDNISONE [Concomitant]
     Active Substance: PREDNISONE
     Indication: Product used for unknown indication
     Route: 065
  3. TACROLIMUS [Concomitant]
     Active Substance: TACROLIMUS
     Indication: Product used for unknown indication
     Route: 065
  4. BACTRIM DS [Concomitant]
     Active Substance: SULFAMETHOXAZOLE\TRIMETHOPRIM
     Indication: Product used for unknown indication
     Route: 065
  5. PANTOPRAZOLE [Concomitant]
     Active Substance: PANTOPRAZOLE
     Indication: Product used for unknown indication
     Route: 065
  6. ACYCLOVIR [Concomitant]
     Active Substance: ACYCLOVIR
     Indication: Product used for unknown indication
     Route: 065

REACTIONS (2)
  - Muscle spasms [Not Recovered/Not Resolved]
  - Off label use [Unknown]

NARRATIVE: CASE EVENT DATE: 20220216
